FAERS Safety Report 5884098-X (Version None)
Quarter: 2008Q3

REPORT INFORMATION
  Report Type: 
  Country: None (occurrence: None)
  Receive Date: 20080911
  Receipt Date: 20080904
  Transmission Date: 20090109
  Serious: Yes (Hospitalization)
  Sender: FDA-Public Use
  Company Number: ADR1972008

PATIENT
  Age: 78 Year
  Sex: Male

DRUGS (3)
  1. RAMIPRIL [Suspect]
  2. BLINDED THERAPY [Concomitant]
  3. NEBIVOLOL HCL [Concomitant]

REACTIONS (5)
  - ASTHENIA [None]
  - CONDITION AGGRAVATED [None]
  - DYSPNOEA [None]
  - HYPOTENSION [None]
  - LEFT VENTRICULAR FAILURE [None]
